FAERS Safety Report 25098725 (Version 1)
Quarter: 2025Q1

REPORT INFORMATION
  Report Type: Spontaneous
  Country: US (occurrence: US)
  Receive Date: 20250320
  Receipt Date: 20250320
  Transmission Date: 20250409
  Serious: Yes (Other)
  Sender: ABBVIE
  Company Number: US-ABBVIE-6184733

PATIENT
  Sex: Female

DRUGS (2)
  1. VRAYLAR [Suspect]
     Active Substance: CARIPRAZINE
     Indication: Bipolar I disorder
     Route: 048
  2. LAMOTRIGINE [Concomitant]
     Active Substance: LAMOTRIGINE
     Indication: Bipolar I disorder

REACTIONS (4)
  - Neuroleptic malignant syndrome [Recovered/Resolved]
  - Blood urine present [Recovered/Resolved]
  - Blood creatine increased [Recovered/Resolved]
  - Muscle atrophy [Recovered/Resolved]
